FAERS Safety Report 14724101 (Version 4)
Quarter: 2020Q2

REPORT INFORMATION
  Report Type: Report from Study
  Country: US (occurrence: US)
  Receive Date: 20180405
  Receipt Date: 20200512
  Transmission Date: 20200713
  Serious: Yes (Hospitalization, Other)
  Sender: FDA-Public Use
  Company Number: US-ACTELION-A-NJ2018-170163

PATIENT
  Age: 74 Year
  Sex: Female
  Weight: 96.15 kg

DRUGS (1)
  1. TRACLEER [Suspect]
     Active Substance: BOSENTAN
     Indication: PULMONARY ARTERIAL HYPERTENSION
     Dosage: 125 MG, BID
     Route: 048

REACTIONS (9)
  - Hospitalisation [Unknown]
  - Weight decreased [Unknown]
  - Pneumonia [Unknown]
  - Neoplasm malignant [Unknown]
  - Dementia [Unknown]
  - Cardiac arrest [Unknown]
  - Catheter removal [Unknown]
  - Malaise [Unknown]
  - Sciatica [Unknown]

NARRATIVE: CASE EVENT DATE: 201802
